FAERS Safety Report 16595212 (Version 1)
Quarter: 2019Q3

REPORT INFORMATION
  Report Type: Spontaneous
  Country: PT (occurrence: PT)
  Receive Date: 20190718
  Receipt Date: 20190718
  Transmission Date: 20191004
  Serious: Yes (Other)
  Sender: FDA-Public Use
  Company Number: PT-AUROBINDO-AUR-APL-2019-039896

PATIENT

DRUGS (1)
  1. AMOXICILLIN+CLAVULANIC ACID GENERIS POWDER FOR INJECTABLE SOLUTION [Suspect]
     Active Substance: AMOXICILLIN\CLAVULANIC ACID
     Indication: RESPIRATORY TRACT INFECTION
     Dosage: 1200 MILLIGRAM, 3 TIMES A DAY
     Route: 042
     Dates: start: 20190630, end: 20190630

REACTIONS (2)
  - Rash generalised [Recovered/Resolved]
  - Dyspnoea [Recovered/Resolved]

NARRATIVE: CASE EVENT DATE: 20190630
